FAERS Safety Report 5243067-3 (Version None)
Quarter: 2007Q1

REPORT INFORMATION
  Report Type: 
  Country: None (occurrence: None)
  Receive Date: 20070221
  Receipt Date: 20070216
  Transmission Date: 20070707
  Serious: Yes (Other)
  Sender: FDA-Public Use
  Company Number: DE-BOEHRINGER INGELHEIM PHARMACEUTICALS, INC.-2007-DE-00993DE

PATIENT

DRUGS (1)
  1. AGGRENOX [Suspect]
     Route: 048

REACTIONS (4)
  - AMAUROSIS [None]
  - DEPRESSED LEVEL OF CONSCIOUSNESS [None]
  - MYOCLONUS [None]
  - PETIT MAL EPILEPSY [None]
